FAERS Safety Report 7295284-9 (Version None)
Quarter: 2011Q1

REPORT INFORMATION
  Report Type: 
  Country: None (occurrence: None)
  Receive Date: 20110216
  Receipt Date: 20110209
  Transmission Date: 20110831
  Serious: Yes (Death, Hospitalization)
  Sender: FDA-Public Use
  Company Number: IT-CELGENEUS-083-20785-11021324

PATIENT
  Sex: Female
  Weight: 58 kg

DRUGS (7)
  1. DOXORUBICIN HCL [Suspect]
     Indication: MULTIPLE MYELOMA
     Route: 051
     Dates: start: 20101207, end: 20101230
  2. DOXORUBICIN HCL [Suspect]
     Route: 051
     Dates: start: 20101231, end: 20110110
  3. DEXAMETHASONE [Suspect]
     Indication: MULTIPLE MYELOMA
     Route: 051
     Dates: start: 20101207, end: 20101230
  4. THALIDOMIDE [Suspect]
     Indication: MULTIPLE MYELOMA
     Route: 048
     Dates: start: 20101207, end: 20101220
  5. VELCADE [Suspect]
     Indication: MULTIPLE MYELOMA
     Route: 051
     Dates: start: 20101207, end: 20101230
  6. VELCADE [Suspect]
     Route: 051
     Dates: start: 20101231, end: 20110110
  7. DEXAMETHASONE [Suspect]
     Route: 051
     Dates: start: 20101231, end: 20110121

REACTIONS (2)
  - PNEUMONIA [None]
  - CARDIAC ARREST [None]
